FAERS Safety Report 7533020-9 (Version None)
Quarter: 2011Q2

REPORT INFORMATION
  Report Type: 
  Country: None (occurrence: None)
  Receive Date: 20110608
  Receipt Date: 20110603
  Transmission Date: 20111010
  Serious: Yes (Death)
  Sender: FDA-Public Use
  Company Number: US-CELGENEUS-163-21880-11060637

PATIENT
  Age: 78 Year
  Sex: Male

DRUGS (5)
  1. ASPIRIN [Concomitant]
     Route: 065
  2. BISPHOSPHONATES [Concomitant]
     Route: 065
  3. RED BLOOD CELL GROWTH FACTOR [Concomitant]
     Route: 051
  4. REVLIMID [Suspect]
     Indication: MULTIPLE MYELOMA
     Dosage: 20 MILLIGRAM
     Route: 048
     Dates: start: 20100417, end: 20100617
  5. DEXAMETHASONE [Concomitant]
     Indication: MULTIPLE MYELOMA
     Dosage: LOW DOSE
     Route: 065
     Dates: start: 20100417, end: 20100617

REACTIONS (1)
  - DEATH [None]
